FAERS Safety Report 22298057 (Version 1)
Quarter: 2023Q2

REPORT INFORMATION
  Report Type: Report from Study
  Country: GB (occurrence: GB)
  Receive Date: 20230509
  Receipt Date: 20230509
  Transmission Date: 20230721
  Serious: Yes (Other)
  Sender: FDA-Public Use
  Company Number: GB-SAMSUNG BIOEPIS-SB-2023-12209

PATIENT
  Sex: Female

DRUGS (1)
  1. IMRALDI [Suspect]
     Active Substance: ADALIMUMAB
     Indication: Rheumatoid arthritis
     Dosage: STRENGTH: 40MG/ 0.8ML;
     Route: 058
     Dates: start: 20230417

REACTIONS (6)
  - Loss of personal independence in daily activities [Unknown]
  - Malaise [Unknown]
  - Asthenia [Unknown]
  - Dizziness [Unknown]
  - Lip blister [Unknown]
  - Mobility decreased [Unknown]
